FAERS Safety Report 7705195-X (Version None)
Quarter: 2011Q3

REPORT INFORMATION
  Report Type: 
  Country: None (occurrence: None)
  Receive Date: 20110824
  Receipt Date: 20110817
  Transmission Date: 20111222
  Serious: Yes (Hospitalization)
  Sender: FDA-Public Use
  Company Number: US-SHIRE-SPV1-2011-00562

PATIENT
  Sex: Male

DRUGS (1)
  1. ELAPRASE [Suspect]
     Indication: MUCOPOLYSACCHARIDOSIS II
     Dosage: UNK UNK, 1X/WEEK (3 VIALS)
     Route: 041
     Dates: start: 20070312

REACTIONS (4)
  - MUSCULOSKELETAL DISORDER [None]
  - HEADACHE [None]
  - SHUNT MALFUNCTION [None]
  - CERVICAL SPINAL STENOSIS [None]
